FAERS Safety Report 11622760 (Version 1)
Quarter: 2015Q4

REPORT INFORMATION
  Report Type: Spontaneous
  Country: US (occurrence: US)
  Receive Date: 20151013
  Receipt Date: 20151013
  Transmission Date: 20160304
  Serious: Yes (Death)
  Sender: FDA-Public Use
  Company Number: US-JNJFOC-20150302395

PATIENT
  Sex: Female

DRUGS (4)
  1. VOTRIENT [Concomitant]
     Active Substance: PAZOPANIB HYDROCHLORIDE
     Route: 065
     Dates: start: 201307
  2. TYLENOL [Suspect]
     Active Substance: ACETAMINOPHEN
     Route: 065
  3. TYLENOL [Suspect]
     Active Substance: ACETAMINOPHEN
     Indication: PAIN
     Route: 065
  4. INLYTA [Concomitant]
     Active Substance: AXITINIB
     Route: 065

REACTIONS (3)
  - Drug effect incomplete [Unknown]
  - Asthenia [Recovering/Resolving]
  - Inadequate diet [Recovering/Resolving]
